FAERS Safety Report 4477525-6 (Version None)
Quarter: 2004Q4

REPORT INFORMATION
  Report Type: 
  Country: None (occurrence: None)
  Receive Date: 20041018
  Receipt Date: 20041004
  Transmission Date: 20050328
  Serious: Yes (Other)
  Sender: FDA-Public Use
  Company Number: NL-GLAXOSMITHKLINE-B0347570A

PATIENT
  Age: 72 Year
  Sex: Male

DRUGS (2)
  1. CHLORAMBUCIL [Suspect]
     Indication: WALDENSTROM'S MACROGLOBULINAEMIA
     Dosage: 2MG CYCLIC
     Route: 065
     Dates: start: 20040810, end: 20040815
  2. NO CONCURRENT MEDICATION [Concomitant]

REACTIONS (4)
  - APHASIA [None]
  - DYSKINESIA [None]
  - SPEECH DISORDER [None]
  - VISUAL DISTURBANCE [None]
